FAERS Safety Report 12266625 (Version 1)
Quarter: 2016Q2

REPORT INFORMATION
  Report Type: Spontaneous
  Country: US (occurrence: None)
  Receive Date: 20160413
  Receipt Date: 20160413
  Transmission Date: 20160815
  Serious: No
  Sender: FDA-Public Use
  Company Number: None

PATIENT
  Age: 63 Year
  Weight: 56.7 kg

DRUGS (15)
  1. NEURONTIN [Suspect]
     Active Substance: GABAPENTIN
     Indication: ARTHRALGIA
     Route: 048
     Dates: end: 20160328
  2. FISH OIL [Concomitant]
     Active Substance: FISH OIL
  3. ESTRATEST/TESTERONE CREAM [Concomitant]
  4. NEURONTIN [Suspect]
     Active Substance: GABAPENTIN
     Indication: BACK PAIN
     Route: 048
     Dates: end: 20160328
  5. MAGNESIUM [Concomitant]
     Active Substance: MAGNESIUM
  6. HYDROCODONE [Concomitant]
     Active Substance: HYDROCODONE
  7. LEVOTHYROXINE. [Concomitant]
     Active Substance: LEVOTHYROXINE
  8. MULTIVITS [Concomitant]
  9. BIOSIL [Concomitant]
  10. NEURONTIN [Suspect]
     Active Substance: GABAPENTIN
     Indication: NECK PAIN
     Route: 048
     Dates: end: 20160328
  11. EVAMIST SPRAY (ESTROGEN) [Concomitant]
  12. LEXAPRO [Concomitant]
     Active Substance: ESCITALOPRAM OXALATE
  13. BENADRYL [Concomitant]
     Active Substance: DIPHENHYDRAMINE HYDROCHLORIDE
  14. VITAMIN D [Concomitant]
     Active Substance: CHOLECALCIFEROL
  15. GRAPESEED [Concomitant]

REACTIONS (14)
  - Weight increased [None]
  - Depression [None]
  - Thinking abnormal [None]
  - Crying [None]
  - Hyperhidrosis [None]
  - Restlessness [None]
  - Muscle spasms [None]
  - Therapy cessation [None]
  - Insomnia [None]
  - Irritability [None]
  - Panic reaction [None]
  - Agitation [None]
  - Decreased appetite [None]
  - Suicidal ideation [None]

NARRATIVE: CASE EVENT DATE: 20160328
